FAERS Safety Report 5215710-6 (Version None)
Quarter: 2007Q1

REPORT INFORMATION
  Report Type: 
  Country: None (occurrence: None)
  Receive Date: 20070123
  Receipt Date: 20070110
  Transmission Date: 20070707
  Serious: Yes (Hospitalization)
  Sender: FDA-Public Use
  Company Number: FR-BRISTOL-MYERS SQUIBB COMPANY-13640024

PATIENT
  Age: 67 Year
  Sex: Male

DRUGS (2)
  1. LOPRIL TABS 25 MG [Suspect]
     Indication: ESSENTIAL HYPERTENSION
     Route: 048
     Dates: start: 20051015
  2. CARDENSIEL [Suspect]
     Indication: ESSENTIAL HYPERTENSION
     Route: 048
     Dates: start: 20051015

REACTIONS (1)
  - ERYTHEMA NODOSUM [None]
